FAERS Safety Report 8932561 (Version 1)
Quarter: 2012Q4

REPORT INFORMATION
  Report Type: Spontaneous
  Country: JP (occurrence: None)
  Receive Date: 20121119
  Receipt Date: 20121119
  Transmission Date: 20130627
  Serious: Yes (Life-Threatening)
  Sender: FDA-Public Use
  Company Number: TPA2012A07709

PATIENT
  Age: 82 Year
  Sex: Male

DRUGS (12)
  1. FEBURIC (FEBUXOSTAT) [Suspect]
     Indication: HYPERURICAEMIA
     Dates: start: 20120812, end: 20120825
  2. BLOPRESS (CANDESARTAN CILEXETIL) [Concomitant]
  3. SAMSCA (TOLVAPTAN) TABLET [Concomitant]
  4. DIART (AZOSEMIDE) [Concomitant]
  5. LASIX (FUROSEMIDE) [Concomitant]
  6. NORMONAL (TRIPAMIDE) [Concomitant]
  7. WARFARIN (WARFARIN) [Concomitant]
  8. BEPRICOR (BEPRIDIL HYDROCHLORIDE MONOHYDRATE) [Concomitant]
  9. THYRADIN S (LEVOTHYROXINE SODIUM) [Concomitant]
  10. OMEPRAL (OMEPRAZOLE) [Concomitant]
  11. ARTIST (CARVEDILOL) [Concomitant]
  12. URSO (URSODEOXYCHOLIC ACID) [Concomitant]

REACTIONS (4)
  - Granulocytopenia [None]
  - Thrombocytopenia [None]
  - Anaemia [None]
  - Hyperuricaemia [None]
